FAERS Safety Report 4524128-0 (Version None)
Quarter: 2004Q4

REPORT INFORMATION
  Report Type: 
  Country: None (occurrence: None)
  Receive Date: 20041209
  Receipt Date: 20041125
  Transmission Date: 20050328
  Serious: Yes (Life-Threatening)
  Sender: FDA-Public Use
  Company Number: 2004AP05471

PATIENT
  Age: 80 Year
  Sex: Male
  Weight: 51 kg

DRUGS (11)
  1. OMEPRAL [Suspect]
     Indication: REFLUX OESOPHAGITIS
     Dosage: 20 MG DAILY PO
     Route: 048
     Dates: start: 20040928, end: 20041019
  2. PANALDINE [Suspect]
     Indication: CEREBRAL INFARCTION
     Dosage: 200 MG DAILY PO
     Route: 048
     Dates: start: 20040514
  3. ADALAT CC [Concomitant]
  4. MICARDIS [Concomitant]
  5. DIGOSIN [Concomitant]
  6. LASIX [Concomitant]
  7. RYTHMODAN [Concomitant]
  8. MUCODYNE [Concomitant]
  9. DASEN [Concomitant]
  10. THEO-DUR [Concomitant]
  11. SLOW-K [Concomitant]

REACTIONS (5)
  - BLOOD ALKALINE PHOSPHATASE DECREASED [None]
  - DRUG INEFFECTIVE [None]
  - PANCYTOPENIA [None]
  - REFLUX OESOPHAGITIS [None]
  - VOMITING [None]
